FAERS Safety Report 23409455 (Version 1)
Quarter: 2024Q1

REPORT INFORMATION
  Report Type: Spontaneous
  Country: US (occurrence: US)
  Receive Date: 20240117
  Receipt Date: 20240117
  Transmission Date: 20240410
  Serious: Yes (Other)
  Sender: FDA-Public Use
  Company Number: US-LANTHEUS-LMI-2023-01382

PATIENT
  Age: 96 Year
  Sex: Female
  Weight: 59 kg

DRUGS (1)
  1. DEFINITY [Suspect]
     Active Substance: PERFLUTREN
     Indication: Echocardiogram
     Dosage: 1-1.5 ML (1.0 ML OF DEFINITY PREPARED IN 9.0 ML OF NORMAL SALINE)
     Route: 042
     Dates: start: 20231120, end: 20231120

REACTIONS (5)
  - Acute myocardial infarction [Unknown]
  - Cardio-respiratory arrest [Unknown]
  - Unresponsive to stimuli [Unknown]
  - Dyspnoea [Recovered/Resolved]
  - Musculoskeletal discomfort [Recovered/Resolved]

NARRATIVE: CASE EVENT DATE: 20231120
